FAERS Safety Report 6296408-2 (Version None)
Quarter: 2009Q3

REPORT INFORMATION
  Report Type: 
  Country: None (occurrence: None)
  Receive Date: 20090804
  Receipt Date: 20090723
  Transmission Date: 20100115
  Serious: Yes (Hospitalization)
  Sender: FDA-Public Use
  Company Number: GB-TEVA-203778ISR

PATIENT
  Age: 56 Year
  Sex: Male

DRUGS (7)
  1. BRIMONIDINE [Suspect]
     Indication: EYE OPERATION
     Route: 047
     Dates: start: 20080717, end: 20080901
  2. DEXAMETHASONE [Suspect]
     Indication: EYE INFLAMMATION
     Dates: start: 20080717, end: 20080901
  3. DEXAMETHASONE [Suspect]
     Indication: EYE OPERATION
  4. PREDNISOLONE SODIUM PHOSPHATE [Suspect]
     Indication: EYE OPERATION
     Dates: start: 20080801, end: 20080901
  5. PREDNISOLONE SODIUM PHOSPHATE [Suspect]
     Indication: EYE INFLAMMATION
  6. TOBRAMYCIN [Suspect]
     Indication: EYE INFLAMMATION
     Dates: start: 20080717, end: 20080901
  7. TOBRAMYCIN [Suspect]
     Indication: EYE OPERATION

REACTIONS (2)
  - ASTHMA [None]
  - HYPERSENSITIVITY [None]
